FAERS Safety Report 9440967 (Version 1)
Quarter: 2013Q3

REPORT INFORMATION
  Report Type: Report from Study
  Country: JP (occurrence: JP)
  Receive Date: 20130805
  Receipt Date: 20130805
  Transmission Date: 20140515
  Serious: Yes (Hospitalization, Other)
  Sender: FDA-Public Use
  Company Number: JP-GENZYME-THYM-1003939

PATIENT
  Age: 4 Year
  Sex: Male
  Weight: 20 kg

DRUGS (33)
  1. THYMOGLOBULIN [Suspect]
     Indication: BONE MARROW CONDITIONING REGIMEN
     Dosage: 25 MG/DAY, UNK (OVER 8 HOURS)
     Route: 065
     Dates: start: 20120405, end: 20120407
  2. FLUDARA [Suspect]
     Indication: BONE MARROW CONDITIONING REGIMEN
     Dosage: UNK
     Route: 065
     Dates: start: 20120407, end: 20120411
  3. ENDOXAN [Suspect]
     Indication: BONE MARROW CONDITIONING REGIMEN
     Dosage: UNK
     Route: 065
     Dates: start: 20120408, end: 20120411
  4. SOLU-MEDROL [Suspect]
     Indication: PROPHYLAXIS
     Dosage: UNK
     Route: 065
     Dates: start: 20120405, end: 20120515
  5. SOLU-MEDROL [Suspect]
     Indication: PROPHYLAXIS AGAINST GRAFT VERSUS HOST DISEASE
  6. PROGRAF [Suspect]
     Indication: PROPHYLAXIS AGAINST GRAFT VERSUS HOST DISEASE
     Dosage: UNK
     Route: 065
     Dates: start: 20120412
  7. NEUTROGIN [Concomitant]
     Indication: TRANSPLANT
     Dosage: UNK
     Route: 065
     Dates: start: 20120417, end: 20120519
  8. HAPTOGLOBINS [Concomitant]
     Indication: PROPHYLAXIS
     Dosage: UNK
     Route: 065
     Dates: start: 20120413, end: 20120413
  9. POLYMYXIN B [Concomitant]
     Indication: INFECTION PROPHYLAXIS
     Dosage: UNK
     Route: 065
     Dates: start: 20120407, end: 20120425
  10. POLYMYXIN B [Concomitant]
     Indication: STERILISATION
  11. VANCOMYCIN HYDROCHLORIDE [Concomitant]
     Indication: INFECTION PROPHYLAXIS
     Dosage: UNK
     Route: 065
     Dates: start: 20120407, end: 20120425
  12. VANCOMYCIN HYDROCHLORIDE [Concomitant]
     Indication: STERILISATION
  13. VENILON [Concomitant]
     Indication: ANTIVIRAL PROPHYLAXIS
     Dosage: UNK
     Route: 065
     Dates: start: 20120414, end: 20120709
  14. VENILON [Concomitant]
     Indication: STEM CELL TRANSPLANT
  15. GLYCEOL [Concomitant]
     Indication: NERVOUS SYSTEM DISORDER
     Dosage: UNK
     Route: 065
     Dates: start: 20120815, end: 20120823
  16. NICARPINE [Concomitant]
     Indication: PROPHYLAXIS
     Dosage: UNK
     Route: 065
     Dates: start: 20120506, end: 20120530
  17. VICCLOX [Concomitant]
     Indication: NERVOUS SYSTEM DISORDER
     Dosage: UNK
     Route: 065
     Dates: start: 20120815, end: 20120822
  18. VICCLOX [Concomitant]
     Indication: MENINGITIS HERPES
  19. PREDONINE [Concomitant]
     Indication: PROPHYLAXIS AGAINST GRAFT VERSUS HOST DISEASE
     Dosage: UNK
     Route: 065
     Dates: start: 20120516, end: 20120814
  20. ZOVIRAX [Concomitant]
     Indication: ANTIVIRAL PROPHYLAXIS
     Dosage: UNK
     Route: 065
     Dates: start: 20120525
  21. ZOVIRAX [Concomitant]
     Indication: ANTIVIRAL PROPHYLAXIS
  22. ZOVIRAX [Concomitant]
     Indication: ANTIVIRAL PROPHYLAXIS
  23. FLUMARIN [Concomitant]
     Indication: PRODUCT USED FOR UNKNOWN INDICATION
     Dosage: UNK
     Route: 065
     Dates: start: 20120404, end: 20120411
  24. ATARAX-P [Concomitant]
     Indication: PROPHYLAXIS
     Dosage: UNK
     Route: 065
     Dates: start: 20120405, end: 20120407
  25. FUNGUARD [Concomitant]
     Indication: ANTIFUNGAL PROPHYLAXIS
     Dosage: UNK
     Route: 065
     Dates: start: 20120406, end: 20120423
  26. DENOSINE [Concomitant]
     Indication: CYTOMEGALOVIRUS VIRAEMIA
     Dosage: UNK
     Route: 065
     Dates: start: 20120406, end: 20120521
  27. LIPLE [Concomitant]
     Indication: PROPHYLAXIS
     Dosage: UNK
     Route: 065
     Dates: start: 20120406, end: 20120607
  28. HEPARIN [Concomitant]
     Indication: PROPHYLAXIS
     Dosage: UNK
     Route: 065
     Dates: start: 20120406, end: 20120608
  29. SPRYCEL [Concomitant]
     Indication: PRODUCT USED FOR UNKNOWN INDICATION
     Dosage: UNK
     Route: 065
     Dates: start: 20120621, end: 20120822
  30. TASIGNA [Concomitant]
     Indication: PRODUCT USED FOR UNKNOWN INDICATION
     Dosage: UNK
     Route: 065
     Dates: start: 20120822
  31. DECADRON [Concomitant]
     Indication: PROPHYLAXIS AGAINST GRAFT VERSUS HOST DISEASE
     Dosage: UNK
     Route: 065
     Dates: start: 20120815
  32. DECADRON [Concomitant]
     Indication: NERVOUS SYSTEM DISORDER
  33. BAKTAR [Concomitant]
     Indication: ANTIFUNGAL PROPHYLAXIS
     Dosage: UNK
     Route: 065
     Dates: start: 20120628

REACTIONS (13)
  - Convulsion [Recovered/Resolved]
  - Graft versus host disease in skin [Unknown]
  - Graft versus host disease in liver [Unknown]
  - Sepsis [Recovered/Resolved]
  - Meningitis aseptic [Recovered/Resolved]
  - Sepsis [Recovered/Resolved]
  - Cytomegalovirus viraemia [Recovered/Resolved]
  - Cytomegalovirus viraemia [Recovered/Resolved]
  - Cytomegalovirus viraemia [Recovered/Resolved]
  - Pyrexia [Recovered/Resolved]
  - Pyrexia [Recovered/Resolved]
  - Acute lymphocytic leukaemia recurrent [Unknown]
  - Gamma-glutamyltransferase increased [Recovered/Resolved]
